FAERS Safety Report 23251766 (Version 3)
Quarter: 2023Q4

REPORT INFORMATION
  Report Type: Spontaneous
  Country: JP (occurrence: JP)
  Receive Date: 20231201
  Receipt Date: 20231207
  Transmission Date: 20240110
  Serious: Yes (Other)
  Sender: FDA-Public Use
  Company Number: JP-NBI-BJ202306416

PATIENT
  Age: 73 Year
  Sex: Male

DRUGS (2)
  1. OFEV [Suspect]
     Active Substance: NINTEDANIB
     Indication: Idiopathic pulmonary fibrosis
     Route: 048
     Dates: start: 20201208, end: 20210120
  2. OFEV [Suspect]
     Active Substance: NINTEDANIB
     Indication: Lung neoplasm malignant

REACTIONS (2)
  - Cardiac failure [Unknown]
  - Post procedural complication [Unknown]
